FAERS Safety Report 4733746-6 (Version None)
Quarter: 2005Q3

REPORT INFORMATION
  Report Type: 
  Country: None (occurrence: None)
  Receive Date: 20050729
  Receipt Date: 20050722
  Transmission Date: 20060218
  Serious: Yes (Death, Hospitalization)
  Sender: FDA-Public Use
  Company Number: 2005-BP-12459RO

PATIENT
  Age: 86 Year
  Sex: Male

DRUGS (5)
  1. DIGOXIN [Suspect]
     Indication: ATRIAL FIBRILLATION
     Dosage: 0.125 MG (0.125 MG)
  2. CLARITHROMYCIN [Suspect]
     Indication: NASOPHARYNGITIS
     Dosage: 1000 MG (500 MG, 1 IN 12 HR)
  3. FUROSEMIDE [Concomitant]
  4. POTASSIUM ASCORBATE (POTASSIUM ASCORBATE) [Concomitant]
  5. ENALAPRIL MALEATE [Concomitant]

REACTIONS (16)
  - BLOOD CALCIUM DECREASED [None]
  - BLOOD MAGNESIUM DECREASED [None]
  - BODY TEMPERATURE DECREASED [None]
  - BRADYCARDIA [None]
  - CALCIUM IONISED DECREASED [None]
  - CARDIAC ARREST [None]
  - CARDIAC MURMUR [None]
  - CARDIOGENIC SHOCK [None]
  - CARDIOMEGALY [None]
  - DRUG INTERACTION [None]
  - JUGULAR VEIN DISTENSION [None]
  - NASOPHARYNGITIS [None]
  - NODAL RHYTHM [None]
  - RALES [None]
  - RESPIRATORY RATE INCREASED [None]
  - THERAPEUTIC AGENT TOXICITY [None]
